FAERS Safety Report 8972130 (Version 4)
Quarter: 2012Q4

REPORT INFORMATION
  Report Type: 
  Country: US (occurrence: US)
  Receive Date: 20121107
  Receipt Date: 20121219
  Transmission Date: 20130627
  Serious: Yes (Death, Other)
  Sender: FDA-Public Use
  Company Number: US-RB-046373-12

PATIENT
  Age: 20 Month
  Sex: Male
  Weight: 13 kg

DRUGS (2)
  1. SUBOXONE TABLET [Suspect]
     Indication: PRODUCT USED FOR UNKNOWN INDICATION
     Dosage: Dosing details unknown
     Route: 065
  2. CAFFEINE [Suspect]
     Indication: PRODUCT USED FOR UNKNOWN INDICATION
     Dosage: Dosing details unknown
     Route: 065

REACTIONS (8)
  - Respiratory arrest [Fatal]
  - Unresponsive to stimuli [Fatal]
  - Aspiration [Fatal]
  - Brain oedema [Unknown]
  - Respiratory depression [Fatal]
  - Toxicity to various agents [Fatal]
  - Vomiting [Fatal]
  - Contusion [Unknown]
